FAERS Safety Report 21009944 (Version 1)
Quarter: 2022Q2

REPORT INFORMATION
  Report Type: Spontaneous
  Country: US (occurrence: US)
  Receive Date: 20220627
  Receipt Date: 20220627
  Transmission Date: 20220720
  Serious: No
  Sender: FDA-Public Use
  Company Number: US-DENDREON PHARMACEUTICAL LLC-2021DEN000300

PATIENT

DRUGS (1)
  1. PROVENGE [Suspect]
     Active Substance: SIPULEUCEL-T
     Indication: Prostate cancer metastatic
     Dosage: DOSE #1
     Route: 042
     Dates: start: 20211008, end: 20211008

REACTIONS (2)
  - Hypertension [Recovering/Resolving]
  - Haemoglobin increased [Unknown]

NARRATIVE: CASE EVENT DATE: 20211019
